FAERS Safety Report 19283505 (Version 2)
Quarter: 2021Q2

REPORT INFORMATION
  Report Type: Spontaneous
  Country: DE (occurrence: DE)
  Receive Date: 20210521
  Receipt Date: 20210618
  Transmission Date: 20210717
  Serious: Yes (Other)
  Sender: FDA-Public Use
  Company Number: DE-TEVA-2021-DE-1915446

PATIENT
  Age: 19 Year
  Sex: Female
  Weight: 76 kg

DRUGS (1)
  1. ASUMATE 20 [Suspect]
     Active Substance: ETHINYL ESTRADIOL\LEVONORGESTREL
     Indication: PRODUCT USED FOR UNKNOWN INDICATION
     Dosage: 1 DOSAGE FORMS DAILY; ONE TABLET CONTAINS 0,02 MG ETHINYLESTRADIOL AND 0,10 MG LEVONORGESTREL
     Dates: start: 20120422, end: 20140104

REACTIONS (4)
  - Abortion spontaneous [Unknown]
  - Deep vein thrombosis [Unknown]
  - Stillbirth [Unknown]
  - Foetal exposure timing unspecified [Unknown]

NARRATIVE: CASE EVENT DATE: 20131015
